FAERS Safety Report 14289866 (Version 1)
Quarter: 2017Q4

REPORT INFORMATION
  Report Type: Spontaneous
  Country: DE (occurrence: DE)
  Receive Date: 20171215
  Receipt Date: 20171215
  Transmission Date: 20180321
  Serious: Yes (Other)
  Sender: FDA-Public Use
  Company Number: PHHY2017DE183006

PATIENT
  Age: 68 Year
  Sex: Male

DRUGS (1)
  1. MTX HEXAL [Suspect]
     Active Substance: METHOTREXATE SODIUM
     Indication: PSORIASIS
     Dosage: UNK UNK, QW
     Route: 065
     Dates: start: 201710

REACTIONS (2)
  - Amylase increased [Unknown]
  - Lipase increased [Unknown]
